FAERS Safety Report 5061937-6 (Version None)
Quarter: 2006Q3

REPORT INFORMATION
  Report Type: 
  Country: None (occurrence: None)
  Receive Date: 20060721
  Receipt Date: 20060711
  Transmission Date: 20061208
  Serious: Yes (Other)
  Sender: FDA-Public Use
  Company Number: 2006085778

PATIENT
  Age: 66 Year
  Sex: Male
  Weight: 81.6475 kg

DRUGS (5)
  1. BENADRYL [Suspect]
     Indication: HYPERSENSITIVITY
     Dosage: 12-24 TABS DAILY FOR THE PAST YEAR, ORAL
     Route: 048
  2. QUETIAPINE FUMARATE [Concomitant]
  3. RISPERIDONE [Concomitant]
  4. VENLAFAXINE HCL [Concomitant]
  5. ATORVASTATIN CALCIUM [Concomitant]

REACTIONS (6)
  - DYSARTHRIA [None]
  - FALL [None]
  - INCORRECT DOSE ADMINISTERED [None]
  - JOINT INJURY [None]
  - SKIN LACERATION [None]
  - TREATMENT NONCOMPLIANCE [None]
